FAERS Safety Report 22206919 (Version 1)
Quarter: 2023Q2

REPORT INFORMATION
  Report Type: Spontaneous
  Country: US (occurrence: US)
  Receive Date: 20230413
  Receipt Date: 20230413
  Transmission Date: 20230722
  Serious: No
  Sender: FDA-Public Use
  Company Number: US-JNJFOC-20190637268

PATIENT
  Age: 50 Year
  Sex: Male

DRUGS (2)
  1. IBUPROFEN [Suspect]
     Active Substance: IBUPROFEN
     Indication: Headache
     Route: 048
     Dates: start: 20190625
  2. IBUPROFEN [Suspect]
     Active Substance: IBUPROFEN
     Indication: Toothache

REACTIONS (1)
  - Therapeutic product effect incomplete [Unknown]
